FAERS Safety Report 9750998 (Version 1)
Quarter: 2013Q4

REPORT INFORMATION
  Report Type: Spontaneous
  Country: GB (occurrence: GB)
  Receive Date: 20131212
  Receipt Date: 20131212
  Transmission Date: 20140711
  Serious: Yes (Other)
  Sender: FDA-Public Use
  Company Number: GB-GILEAD-GB-CVT-090600

PATIENT
  Age: 70 Year
  Sex: 0

DRUGS (11)
  1. RANEXA [Suspect]
     Indication: ANGINA PECTORIS
     Route: 048
     Dates: start: 20090725, end: 20090728
  2. AMLODIPINE [Concomitant]
     Route: 048
  3. ASPIRIN                            /00002701/ [Concomitant]
     Route: 048
  4. ATORVASTATIN                       /01326101/ [Concomitant]
     Route: 048
  5. BISOPROLOL                         /00802601/ [Concomitant]
  6. EZETIMIBE [Concomitant]
  7. FLUTICASONE                        /00972201/ [Concomitant]
  8. ISOSORBIDE MONONITRATE [Concomitant]
  9. METFORMIN                          /00082701/ [Concomitant]
     Route: 048
  10. NICORANDIL [Concomitant]
  11. OMEPRAZOLE [Concomitant]

REACTIONS (1)
  - Hypoaesthesia oral [Not Recovered/Not Resolved]
